FAERS Safety Report 9101861 (Version 1)
Quarter: 2013Q1

REPORT INFORMATION
  Report Type: Spontaneous
  Country: DE (occurrence: DE)
  Receive Date: 20130217
  Receipt Date: 20130217
  Transmission Date: 20140127
  Serious: Yes (Other)
  Sender: FDA-Public Use
  Company Number: DE-BRISTOL-MYERS SQUIBB COMPANY-17376856

PATIENT
  Sex: 0

DRUGS (2)
  1. REYATAZ [Suspect]
     Route: 064
  2. NORVIR [Suspect]
     Route: 064

REACTIONS (1)
  - Premature baby [Unknown]
